FAERS Safety Report 10388929 (Version 1)
Quarter: 2014Q1

REPORT INFORMATION
  Report Type: Spontaneous
  Country: US (occurrence: None)
  Receive Date: 20140306
  Receipt Date: 20140306
  Transmission Date: 20141002
  Serious: Yes (Hospitalization)
  Sender: FDA-Public Use
  Company Number: 163-21880-13021872

PATIENT
  Age: 77 Year
  Sex: Male
  Weight: 58.51 kg

DRUGS (2)
  1. REVLIMID (LENALIDOMIDE) (CAPSULES) [Suspect]
     Indication: PLASMA CELL MYELOMA
     Route: 048
     Dates: start: 20130112
  2. VITAMINS [Concomitant]

REACTIONS (4)
  - Chronic obstructive pulmonary disease [None]
  - Pneumonia [None]
  - Candida infection [None]
  - Full blood count decreased [None]
